FAERS Safety Report 5640712-5 (Version None)
Quarter: 2008Q1

REPORT INFORMATION
  Report Type: 
  Country: None (occurrence: None)
  Receive Date: 20080227
  Receipt Date: 20080129
  Transmission Date: 20080703
  Serious: Yes (Hospitalization)
  Sender: FDA-Public Use
  Company Number: US-BAXTER-2008BH000928

PATIENT
  Age: 50 Year
  Sex: Male

DRUGS (1)
  1. HEPARIN SODIUM [Suspect]
     Indication: ANTICOAGULANT THERAPY
     Dosage: DOSE UNIT:UNKNOWN
     Route: 065
     Dates: start: 20080125, end: 20080125

REACTIONS (3)
  - INCISION SITE COMPLICATION [None]
  - RESPIRATORY DISORDER [None]
  - SWELLING [None]
